FAERS Safety Report 16013713 (Version 3)
Quarter: 2019Q2

REPORT INFORMATION
  Report Type: Spontaneous
  Country: US (occurrence: US)
  Receive Date: 20190227
  Receipt Date: 20190517
  Transmission Date: 20190711
  Serious: No
  Sender: FDA-Public Use
  Company Number: US-SA-2019SA054949

PATIENT
  Age: 72 Year
  Sex: Female

DRUGS (8)
  1. METOPROLOL SUCCINATE. [Concomitant]
     Active Substance: METOPROLOL SUCCINATE
  2. PRAVASTATIN. [Concomitant]
     Active Substance: PRAVASTATIN
  3. FISH OIL [Concomitant]
     Active Substance: FISH OIL
  4. LATANOPROST. [Concomitant]
     Active Substance: LATANOPROST
  5. DUPIXENT [Suspect]
     Active Substance: DUPILUMAB
     Dosage: 300 MG, QOW
     Route: 058
     Dates: start: 20190118
  6. MULTIVITAMINS [VITAMINS NOS] [Concomitant]
     Active Substance: VITAMINS
  7. CALTRATE [Concomitant]
     Active Substance: CALCIUM CARBONATE
  8. VITAMIN D3 [Concomitant]
     Active Substance: CHOLECALCIFEROL

REACTIONS (9)
  - Dry skin [Unknown]
  - Pruritus generalised [Unknown]
  - Sensation of foreign body [Unknown]
  - Pain [Unknown]
  - Contusion [Unknown]
  - Eye inflammation [Unknown]
  - Eye pruritus [Unknown]
  - Vision blurred [Unknown]
  - Ocular hyperaemia [Unknown]

NARRATIVE: CASE EVENT DATE: 2019
